FAERS Safety Report 19929404 (Version 1)
Quarter: 2021Q4

REPORT INFORMATION
  Report Type: Spontaneous
  Country: US (occurrence: US)
  Receive Date: 20211007
  Receipt Date: 20211007
  Transmission Date: 20220303
  Serious: No
  Sender: FDA-Public Use
  Company Number: 2021A746527

PATIENT
  Sex: Female
  Weight: 68 kg

DRUGS (5)
  1. SYMBICORT [Suspect]
     Active Substance: BUDESONIDE\FORMOTEROL FUMARATE DIHYDRATE
     Route: 055
  2. KLONOPIN [Concomitant]
     Active Substance: CLONAZEPAM
  3. ZOLOFT [Concomitant]
     Active Substance: SERTRALINE HYDROCHLORIDE
  4. PREDNISONE [Concomitant]
     Active Substance: PREDNISONE
  5. SEROQUEL [Concomitant]
     Active Substance: QUETIAPINE FUMARATE

REACTIONS (6)
  - Weight increased [Unknown]
  - Red blood cell abnormality [Unknown]
  - Anaemia [Unknown]
  - Malnutrition [Unknown]
  - Eosinophil count increased [Unknown]
  - Vitamin B12 deficiency [Unknown]
